FAERS Safety Report 17124312 (Version 2)
Quarter: 2020Q1

REPORT INFORMATION
  Report Type: Report from Study
  Country: FR (occurrence: FR)
  Receive Date: 20191206
  Receipt Date: 20200116
  Transmission Date: 20200409
  Serious: Yes (Death, Other)
  Sender: FDA-Public Use
  Company Number: FR-JNJFOC-20191144265

PATIENT

DRUGS (1)
  1. DUROGESIC [Suspect]
     Active Substance: FENTANYL
     Indication: PAIN
     Route: 065

REACTIONS (16)
  - Confusional state [Unknown]
  - Dyspnoea [Unknown]
  - Nausea [Unknown]
  - Miosis [Unknown]
  - Drug dependence [Unknown]
  - Respiratory arrest [Unknown]
  - Poisoning [Unknown]
  - Hypotension [Unknown]
  - Overdose [Fatal]
  - Drug abuse [Unknown]
  - Coma [Unknown]
  - Intentional product misuse [Unknown]
  - Cardiac arrest [Unknown]
  - Pneumonitis [Unknown]
  - Somnolence [Unknown]
  - Vomiting [Unknown]
